FAERS Safety Report 24675691 (Version 1)
Quarter: 2024Q4

REPORT INFORMATION
  Report Type: Spontaneous
  Country: US (occurrence: US)
  Receive Date: 20241128
  Receipt Date: 20241128
  Transmission Date: 20250115
  Serious: No
  Sender: TEIKOKU
  Company Number: US-TPU-TPU-2024-00593

PATIENT
  Sex: Female

DRUGS (3)
  1. LIDOCAINE PATCH [Suspect]
     Active Substance: LIDOCAINE
     Indication: Neuropathy peripheral
     Dates: start: 20241122
  2. LIDOCAINE PATCH [Suspect]
     Active Substance: LIDOCAINE
     Indication: Sciatica
  3. LIDOCAINE PATCH [Suspect]
     Active Substance: LIDOCAINE
     Indication: Intervertebral disc protrusion

REACTIONS (1)
  - Wrong technique in product usage process [Unknown]
